FAERS Safety Report 6456287-7 (Version None)
Quarter: 2009Q4

REPORT INFORMATION
  Report Type: 
  Country: None (occurrence: None)
  Receive Date: 20091125
  Receipt Date: 20091112
  Transmission Date: 20100525
  Serious: Yes (Hospitalization)
  Sender: FDA-Public Use
  Company Number: US-ELI_LILLY_AND_COMPANY-US200911003770

PATIENT
  Sex: Female

DRUGS (2)
  1. FORTEO [Suspect]
     Indication: OSTEOPOROSIS
     Dosage: UNK, UNKNOWN
     Dates: end: 20081101
  2. FORTEO [Suspect]
     Dosage: UNK, UNKNOWN
     Dates: start: 20081201

REACTIONS (2)
  - ARTHROPATHY [None]
  - HIP ARTHROPLASTY [None]
